FAERS Safety Report 7304653-X (Version None)
Quarter: 2011Q1

REPORT INFORMATION
  Report Type: 
  Country: None (occurrence: None)
  Receive Date: 20110222
  Receipt Date: 20110209
  Transmission Date: 20110831
  Serious: Yes (Death, Other)
  Sender: FDA-Public Use
  Company Number: JP-BAYER-200912194BYL

PATIENT
  Sex: Female
  Weight: 49 kg

DRUGS (6)
  1. NEXAVAR [Suspect]
     Dosage: DAILY DOSE 400 MG
     Route: 048
     Dates: start: 20090624, end: 20090628
  2. DUROTEP [Concomitant]
     Dosage: 2.1 MG, Q72HR
     Route: 062
     Dates: start: 20090615
  3. ALDACTONE [Concomitant]
     Dosage: 50 MG, UNK
     Route: 048
     Dates: start: 20090619
  4. LASIX [Concomitant]
     Dosage: 20 MG, UNK
     Route: 048
     Dates: start: 20090619
  5. VONFENAC [Suspect]
     Indication: PRODUCT USED FOR UNKNOWN INDICATION
     Dosage: 25 MG, UNK
     Route: 054
     Dates: start: 20090622
  6. NEXAVAR [Suspect]
     Indication: HEPATIC NEOPLASM MALIGNANT
     Dosage: 400 MG, BID
     Route: 048
     Dates: start: 20090616, end: 20090623

REACTIONS (4)
  - DISSEMINATED INTRAVASCULAR COAGULATION [None]
  - HEPATIC NEOPLASM MALIGNANT [None]
  - DUODENAL ULCER [None]
  - SEPSIS [None]
